FAERS Safety Report 6263601-4 (Version None)
Quarter: 2009Q3

REPORT INFORMATION
  Report Type: 
  Country: None (occurrence: None)
  Receive Date: 20090710
  Receipt Date: 20090528
  Transmission Date: 20100115
  Serious: No
  Sender: FDA-Public Use
  Company Number: A0787106A

PATIENT
  Age: 30 Year
  Sex: Female

DRUGS (7)
  1. TYKERB [Suspect]
     Dosage: 1250MG PER DAY
     Route: 048
     Dates: start: 20090428
  2. XELODA [Concomitant]
  3. VITAMIN E [Concomitant]
  4. EFFEXOR [Concomitant]
  5. SENSODYNE-F [Concomitant]
  6. ZANTAC [Concomitant]
  7. IBUPROFEN [Concomitant]

REACTIONS (1)
  - RASH [None]
